FAERS Safety Report 15826498 (Version 1)
Quarter: 2019Q1

REPORT INFORMATION
  Report Type: Spontaneous
  Country: DK (occurrence: DK)
  Receive Date: 20190115
  Receipt Date: 20190115
  Transmission Date: 20190417
  Serious: Yes (Hospitalization)
  Sender: FDA-Public Use
  Company Number: DK-CELLTRION INC.-2019DK017777

PATIENT

DRUGS (13)
  1. LAMOTRIGINE. [Concomitant]
     Active Substance: LAMOTRIGINE
     Indication: EPILEPSY
  2. LEVETIRACETAM. [Concomitant]
     Active Substance: LEVETIRACETAM
     Indication: DEPRESSION
     Dosage: 1500 MG, DAILY
  3. LOPERAMIDE [Concomitant]
     Active Substance: LOPERAMIDE
     Indication: BILE ACID MALABSORPTION
     Dosage: 1 DF, UNK 2 TO 8 MG
  4. TYSABRI [Suspect]
     Active Substance: NATALIZUMAB
     Indication: CROHN^S DISEASE
     Route: 065
  5. INFLIXIMAB (UNKNOWN) [Suspect]
     Active Substance: INFLIXIMAB
     Indication: CROHN^S DISEASE
     Dosage: UNK
     Route: 065
  6. VEDOLIZUMAB [Suspect]
     Active Substance: VEDOLIZUMAB
     Indication: CROHN^S DISEASE
     Dosage: UNK
     Route: 065
  7. SPIRONOLACTONE. [Concomitant]
     Active Substance: SPIRONOLACTONE
  8. LIRAGLUTIDE [Suspect]
     Active Substance: LIRAGLUTIDE
     Indication: DIARRHOEA
     Dosage: UNK
     Route: 065
  9. COLESEVELAM [Concomitant]
     Active Substance: COLESEVELAM
     Dosage: UNK
     Route: 065
  10. MERCAPTOPURINE. [Concomitant]
     Active Substance: MERCAPTOPURINE
     Indication: CROHN^S DISEASE
     Dosage: UNK
     Route: 065
  11. OCTREOTIDE. [Suspect]
     Active Substance: OCTREOTIDE
     Indication: DIARRHOEA
     Dosage: UNK
     Route: 065
  12. ADALIMUMAB [Suspect]
     Active Substance: ADALIMUMAB
     Indication: CROHN^S DISEASE
     Dosage: UNK
     Route: 065
  13. COLESEVELAM [Concomitant]
     Active Substance: COLESEVELAM
     Indication: CROHN^S DISEASE
     Dosage: 1875 MG, DAILY

REACTIONS (6)
  - Drug ineffective [Unknown]
  - Functional gastrointestinal disorder [Not Recovered/Not Resolved]
  - Product use in unapproved indication [Unknown]
  - Abdominal pain [Unknown]
  - Clostridium difficile colitis [Unknown]
  - Bile acid malabsorption [Not Recovered/Not Resolved]
